FAERS Safety Report 16978860 (Version 2)
Quarter: 2020Q1

REPORT INFORMATION
  Report Type: Spontaneous
  Country: JP (occurrence: JP)
  Receive Date: 20191031
  Receipt Date: 20200317
  Transmission Date: 20200409
  Serious: Yes (Death, Other)
  Sender: FDA-Public Use
  Company Number: JP-MYLANLABS-2019M1102016

PATIENT
  Age: 72 Year
  Sex: Male
  Weight: 43.8 kg

DRUGS (7)
  1. MORPHINE [Suspect]
     Active Substance: MORPHINE
     Indication: DYSPNOEA
     Dosage: 1.1 MILLIGRAM, QH
     Route: 042
     Dates: start: 20191022, end: 20191023
  2. KEYTRUDA [Suspect]
     Active Substance: PEMBROLIZUMAB
     Indication: LUNG NEOPLASM MALIGNANT
     Dosage: 200 MILLIGRAM, QD
     Route: 042
     Dates: start: 20180320, end: 20191021
  3. TAZOPIPE FOR COMBINATION INJECTION 2.25 [PFIZER] [Suspect]
     Active Substance: PIPERACILLIN SODIUM\TAZOBACTAM SODIUM
     Indication: PNEUMONIA
     Dosage: 4.5 GRAM, TID
     Route: 042
     Dates: start: 20191009, end: 20191023
  4. VFEND [Suspect]
     Active Substance: VORICONAZOLE
     Indication: BRONCHOPULMONARY ASPERGILLOSIS
     Dosage: 300 MILLIGRAM, BID
     Route: 042
     Dates: start: 20191017, end: 20191017
  5. PREDONINE [Suspect]
     Active Substance: PREDNISOLONE
     Indication: INTERSTITIAL LUNG DISEASE
     Dosage: 80 MILLIGRAM, QD
     Route: 042
     Dates: start: 20191021, end: 20191023
  6. VFEND [Suspect]
     Active Substance: VORICONAZOLE
     Dosage: 150 MILLIGRAM, BID
     Route: 042
     Dates: start: 20191018, end: 20191021
  7. LEVOFLOXACIN. [Suspect]
     Active Substance: LEVOFLOXACIN
     Indication: PNEUMONIA
     Dosage: 500 MILLIGRAM, QD
     Route: 048
     Dates: start: 20191001, end: 20191008

REACTIONS (4)
  - Acute respiratory distress syndrome [Fatal]
  - Interstitial lung disease [Unknown]
  - Disseminated intravascular coagulation [Unknown]
  - Liver disorder [Not Recovered/Not Resolved]

NARRATIVE: CASE EVENT DATE: 201910
